FAERS Safety Report 5123807-4 (Version None)
Quarter: 2006Q3

REPORT INFORMATION
  Report Type: 
  Country: None (occurrence: None)
  Receive Date: 20060811
  Receipt Date: 20060518
  Transmission Date: 20061208
  Serious: No
  Sender: FDA-Public Use
  Company Number: 200615127US

PATIENT
  Sex: Male

DRUGS (2)
  1. APIDRA [Suspect]
     Indication: DIABETES MELLITUS
     Dates: start: 20060501
  2. INSULIN HUMAN (HUMULIN R) [Concomitant]

REACTIONS (1)
  - VISION BLURRED [None]
